FAERS Safety Report 5181417-7 (Version None)
Quarter: 2006Q4

REPORT INFORMATION
  Report Type: 
  Country: None (occurrence: None)
  Receive Date: 20061220
  Receipt Date: 20060110
  Transmission Date: 20070319
  Serious: No
  Sender: FDA-Public Use
  Company Number: US-GLAXOSMITHKLINE-A0588518A

PATIENT
  Sex: Female

DRUGS (13)
  1. COMMIT [Suspect]
     Dates: start: 20051212
  2. GABAPENTIN [Concomitant]
  3. METFORMIN [Concomitant]
  4. DILTIAZEM HCL [Concomitant]
  5. AVANDIA [Concomitant]
  6. LEVOTHYROXINE SODIUM [Concomitant]
  7. LISINOPRIL [Concomitant]
  8. FUROSEMIDE [Concomitant]
  9. GLYBURIDE [Concomitant]
  10. TRAMADOL HCL [Concomitant]
  11. ALBUTEROL [Concomitant]
  12. NITROQUICK [Concomitant]
  13. ASPIRIN [Concomitant]

REACTIONS (10)
  - CHEST DISCOMFORT [None]
  - DYSGEUSIA [None]
  - DYSPHAGIA [None]
  - DYSPNOEA [None]
  - FEELING JITTERY [None]
  - INSOMNIA [None]
  - ORAL DISCOMFORT [None]
  - SALIVA ALTERED [None]
  - THROAT IRRITATION [None]
  - THROAT TIGHTNESS [None]
